FAERS Safety Report 7424730-2 (Version None)
Quarter: 2011Q2

REPORT INFORMATION
  Report Type: 
  Country: None (occurrence: None)
  Receive Date: 20110419
  Receipt Date: 20110414
  Transmission Date: 20111010
  Serious: Yes (Death)
  Sender: FDA-Public Use
  Company Number: JP-PFIZER INC-2011081769

PATIENT
  Age: 77 Year
  Sex: Male
  Weight: 52 kg

DRUGS (12)
  1. TEMSIROLIMUS [Suspect]
     Indication: RENAL CELL CARCINOMA
     Dosage: 25 MG, WEEKLY
     Route: 041
     Dates: start: 20101109
  2. CELESTAMINE TAB [Concomitant]
     Dosage: UNK
     Dates: start: 20101123
  3. FENTANYL CITRATE [Concomitant]
     Indication: RENAL CELL CARCINOMA
     Dosage: UNK
     Route: 003
  4. GLUFAST [Concomitant]
     Dosage: 10 MG, 3X/DAY
     Dates: end: 20101115
  5. GASTER [Concomitant]
     Dosage: 10 MG, 2X/DAY
     Route: 048
  6. BISOLVON [Concomitant]
     Indication: RENAL CELL CARCINOMA
     Dosage: 5 ML, 3X/DAY
     Route: 048
     Dates: start: 20101117
  7. HUMALOG [Concomitant]
     Dosage: UNK
     Route: 058
     Dates: start: 20101116
  8. CELESTAMINE TAB [Concomitant]
     Dosage: UNK
     Dates: start: 20101116
  9. MIYA BM [Concomitant]
     Dosage: 1 G, 3X/DAY
     Route: 048
     Dates: start: 20101204
  10. CELESTAMINE TAB [Concomitant]
     Dosage: UNK
     Dates: start: 20101109
  11. BASEN [Concomitant]
     Dosage: 0.3 MG, 3X/DAY
     Dates: end: 20101115
  12. DECADRON [Concomitant]
     Indication: RENAL CELL CARCINOMA
     Dosage: 4 MG, 1X/DAY
     Route: 048

REACTIONS (1)
  - DEATH [None]
